FAERS Safety Report 9100715 (Version 2)
Quarter: 2014Q4

REPORT INFORMATION
  Report Type: Report from Study
  Country: MX (occurrence: MX)
  Receive Date: 20130214
  Receipt Date: 20141110
  Transmission Date: 20150529
  Serious: Yes (Hospitalization, Other)
  Sender: FDA-Public Use
  Company Number: PHHY2013MX013396

PATIENT
  Age: 69 Year
  Sex: Female

DRUGS (9)
  1. MIFLONIDE [Suspect]
     Active Substance: BUDESONIDE
     Indication: DYSPNOEA
  2. MIFLONIDE [Suspect]
     Active Substance: BUDESONIDE
     Indication: RESPIRATORY DISORDER
     Dosage: 200 MG, Q12H
     Route: 065
     Dates: start: 201209
  3. AVAMYS [Concomitant]
     Active Substance: FLUTICASONE FUROATE
     Indication: NASAL DRYNESS
     Dosage: UNK
     Route: 065
     Dates: start: 2011
  4. ONBREZ [Suspect]
     Active Substance: INDACATEROL
     Indication: CHRONIC OBSTRUCTIVE PULMONARY DISEASE
     Dosage: 150 UG, QD
     Route: 055
  5. ONBREZ [Suspect]
     Active Substance: INDACATEROL
     Indication: OFF LABEL USE
     Dosage: 150 UG, QD
     Route: 055
  6. RINELON [Concomitant]
     Indication: NASAL DRYNESS
     Dosage: 1 IN EACH NOSTRIL, Q12H
     Route: 045
     Dates: start: 2011
  7. RINELON [Concomitant]
     Indication: DYSPNOEA
  8. ONBREZ [Suspect]
     Active Substance: INDACATEROL
     Indication: BRONCHIAL HYPERREACTIVITY
     Dosage: 300 UG, UNK
     Route: 055
     Dates: start: 2011
  9. ESPAVEN [Concomitant]
     Indication: GASTRITIS
     Dosage: 2 UKN, DAILY
     Route: 065
     Dates: start: 1994

REACTIONS (11)
  - Bronchitis [Recovered/Resolved]
  - Tremor [Recovered/Resolved]
  - Blindness [Not Recovered/Not Resolved]
  - Retinal detachment [Not Recovered/Not Resolved]
  - Retinal haemorrhage [Not Recovered/Not Resolved]
  - Retinal vascular disorder [Unknown]
  - Procedural complication [Not Recovered/Not Resolved]
  - Retinal tear [Not Recovered/Not Resolved]
  - Gastritis [Not Recovered/Not Resolved]
  - Dyspnoea [Recovered/Resolved]
  - Influenza [Not Recovered/Not Resolved]

NARRATIVE: CASE EVENT DATE: 201407
